FAERS Safety Report 25003774 (Version 1)
Quarter: 2025Q1

REPORT INFORMATION
  Report Type: Spontaneous
  Country: US (occurrence: None)
  Receive Date: 20250221
  Receipt Date: 20250221
  Transmission Date: 20250408
  Serious: Yes (Hospitalization)
  Sender: FDA-CTU
  Company Number: None

PATIENT
  Age: 0 Year
  Sex: Female
  Weight: 0.98 kg

DRUGS (2)
  1. AMPHETAMINE [Suspect]
     Active Substance: AMPHETAMINE
     Dates: start: 20210423
  2. LABETALOL [Suspect]
     Active Substance: LABETALOL
     Dates: start: 20210423

REACTIONS (6)
  - Foetal growth restriction [None]
  - Premature baby [None]
  - Caesarean section [None]
  - Foetal growth restriction [None]
  - Maternal drugs affecting foetus [None]
  - Ultrasound foetal abnormal [None]

NARRATIVE: CASE EVENT DATE: 20211207
